FAERS Safety Report 7100216-X (Version None)
Quarter: 2010Q4

REPORT INFORMATION
  Report Type: 
  Country: None (occurrence: None)
  Receive Date: 20101112
  Receipt Date: 20101102
  Transmission Date: 20110411
  Serious: Yes (Hospitalization, Other)
  Sender: FDA-Public Use
  Company Number: US-ELI_LILLY_AND_COMPANY-US201009006522

PATIENT
  Sex: Male

DRUGS (9)
  1. EFFIENT [Suspect]
     Indication: ACUTE CORONARY SYNDROME
     Dosage: 10 MG, UNKNOWN
     Route: 065
     Dates: start: 20090802
  2. NITROGLYCERIN [Concomitant]
     Dosage: UNK, UNKNOWN
     Route: 065
  3. TOPROL-XL [Concomitant]
     Dosage: 50 MG, UNKNOWN
     Route: 065
  4. AMLODIPINE [Concomitant]
     Dosage: 10 MG, UNKNOWN
     Route: 065
  5. CRESTOR [Concomitant]
     Dosage: 20 MG, UNKNOWN
     Route: 065
  6. HYDROCHLOROTHIAZIDE [Concomitant]
     Dosage: 25 MG, UNKNOWN
     Route: 065
  7. NEXIUM [Concomitant]
     Dosage: 40 MG, UNKNOWN
     Route: 065
  8. ASPIRIN [Concomitant]
     Dosage: 81 MG, UNKNOWN
     Route: 065
  9. WELCHOL [Concomitant]
     Dosage: 625 MG, UNKNOWN
     Route: 065

REACTIONS (3)
  - CHEST PAIN [None]
  - CORONARY ARTERY RESTENOSIS [None]
  - FATIGUE [None]
